FAERS Safety Report 22646805 (Version 1)
Quarter: 2023Q2

REPORT INFORMATION
  Report Type: Spontaneous
  Country: IT (occurrence: IT)
  Receive Date: 20230627
  Receipt Date: 20230627
  Transmission Date: 20230722
  Serious: Yes (Death, Other)
  Sender: FDA-Public Use
  Company Number: IT-GLENMARK PHARMACEUTICALS-2023GMK082796

PATIENT

DRUGS (2)
  1. RYALTRIS [Suspect]
     Active Substance: MOMETASONE FUROATE MONOHYDRATE\OLOPATADINE HYDROCHLORIDE
     Indication: Rhinitis allergic
     Dosage: 2 DOSAGE FORM, BID (TWO ACTUATIONS IN EACH NOSTRIL TWICE DAILY (MORNING AND EVENING))
     Route: 045
  2. RYALTRIS [Suspect]
     Active Substance: MOMETASONE FUROATE MONOHYDRATE\OLOPATADINE HYDROCHLORIDE
     Dosage: RESTARTED AGAIN, 2 DOSAGE FORM, BID (TWO ACTUATIONS IN EACH NOSTRIL TWICE DAILY (MORNING AND EVENING
     Route: 045

REACTIONS (2)
  - Acute pulmonary oedema [Fatal]
  - Cardiac disorder [Unknown]
